FAERS Safety Report 8416715-4 (Version None)
Quarter: 2012Q2

REPORT INFORMATION
  Report Type: 
  Country: None (occurrence: None)
  Receive Date: 20120606
  Receipt Date: 20120605
  Transmission Date: 20120825
  Serious: Yes (Hospitalization)
  Sender: FDA-Public Use
  Company Number: PHHY2012CH016333

PATIENT
  Sex: Female

DRUGS (1)
  1. GILENYA [Suspect]
     Dosage: UNK UKN, UNK
     Dates: start: 20120201, end: 20120214

REACTIONS (6)
  - HYPERVENTILATION [None]
  - HEART RATE IRREGULAR [None]
  - BRADYCARDIA [None]
  - INSOMNIA [None]
  - FEAR [None]
  - DYSPNOEA [None]
